FAERS Safety Report 6827435-1 (Version None)
Quarter: 2010Q3

REPORT INFORMATION
  Report Type: 
  Country: None (occurrence: None)
  Receive Date: 20100709
  Receipt Date: 20070111
  Transmission Date: 20110219
  Serious: No
  Sender: FDA-Public Use
  Company Number: US-PFIZER INC-2007004177

PATIENT
  Sex: Female
  Weight: 54.43 kg

DRUGS (4)
  1. CHANTIX [Suspect]
     Dates: start: 20061201
  2. CELEXA [Concomitant]
  3. HYDROCHLOROTHIAZIDE [Concomitant]
  4. PRILOSEC [Concomitant]

REACTIONS (2)
  - DYSPNOEA [None]
  - WEIGHT INCREASED [None]
